FAERS Safety Report 5625931-6 (Version None)
Quarter: 2008Q1

REPORT INFORMATION
  Report Type: 
  Country: None (occurrence: None)
  Receive Date: 20080211
  Receipt Date: 20080128
  Transmission Date: 20080703
  Serious: No
  Sender: FDA-Public Use
  Company Number: 8029630

PATIENT
  Age: 13 Year
  Sex: Male
  Weight: 56 kg

DRUGS (3)
  1. METHYLPHENIDATE HCL [Suspect]
     Dosage: 30 MG 1/D
     Dates: start: 20070219
  2. MEDIKINET [Concomitant]
  3. CONCERTA [Concomitant]

REACTIONS (7)
  - APATHY [None]
  - FATIGUE [None]
  - GASTROINTESTINAL PAIN [None]
  - HEADACHE [None]
  - HYPOTONIA [None]
  - MALAISE [None]
  - TIC [None]
